FAERS Safety Report 12581008 (Version 1)
Quarter: 2016Q3

REPORT INFORMATION
  Report Type: Spontaneous
  Country: PT (occurrence: PT)
  Receive Date: 20160721
  Receipt Date: 20160721
  Transmission Date: 20161109
  Serious: Yes (Other)
  Sender: FDA-Public Use
  Company Number: PT-TEVA-676347ISR

PATIENT
  Age: 61 Year
  Sex: Male

DRUGS (9)
  1. DEXAMETASONA [Concomitant]
     Active Substance: DEXAMETHASONE
     Indication: HYPOPHARYNGEAL NEOPLASM
     Route: 042
     Dates: start: 20160628, end: 20160628
  2. SORO FISIOLOGICO [Concomitant]
     Indication: PRODUCT USED FOR UNKNOWN INDICATION
     Dates: start: 20160628, end: 20160628
  3. CLORETO DE POTASSIO [Concomitant]
     Indication: HYPOPHARYNGEAL NEOPLASM
     Route: 042
     Dates: start: 20160628, end: 20160628
  4. SULFATO DE MAGNESIO [Concomitant]
     Indication: HYPOPHARYNGEAL NEOPLASM
     Route: 042
     Dates: start: 20160628, end: 20160628
  5. MANITOL [Concomitant]
     Indication: HYPOPHARYNGEAL NEOPLASM
     Route: 042
     Dates: start: 20160628, end: 20160628
  6. IVEMEND [Concomitant]
     Active Substance: FOSAPREPITANT DIMEGLUMINE
     Indication: HYPOPHARYNGEAL NEOPLASM
     Dates: start: 20160628, end: 20160628
  7. ONDANSETROM [Concomitant]
     Indication: HYPOPHARYNGEAL NEOPLASM
     Route: 042
     Dates: start: 20160628, end: 20160628
  8. LORAZEPAM. [Concomitant]
     Active Substance: LORAZEPAM
     Indication: HYPOPHARYNGEAL NEOPLASM
     Route: 048
     Dates: start: 20160628, end: 20160628
  9. CISPLATINA TEVA [Suspect]
     Active Substance: CISPLATIN
     Indication: HYPOPHARYNGEAL NEOPLASM
     Dosage: THERAPEUTIC INDICATION: CARCINOMA OF THE HYPOPHARYNX
     Route: 042
     Dates: start: 20160628, end: 20160628

REACTIONS (4)
  - Dysphonia [Recovered/Resolved]
  - Erythema [Recovered/Resolved]
  - Pruritus generalised [Recovered/Resolved]
  - Ocular hyperaemia [Recovered/Resolved]

NARRATIVE: CASE EVENT DATE: 20160628
